FAERS Safety Report 25713503 (Version 1)
Quarter: 2025Q3

REPORT INFORMATION
  Report Type: Spontaneous
  Country: US (occurrence: US)
  Receive Date: 20250822
  Receipt Date: 20250822
  Transmission Date: 20251020
  Serious: Yes (Death, Other)
  Sender: ALEXION PHARMACEUTICALS
  Company Number: US-AstraZeneca-CH-00901371A

PATIENT
  Age: 54 Year
  Sex: Female
  Weight: 66 kg

DRUGS (1)
  1. LYNPARZA [Suspect]
     Active Substance: OLAPARIB
     Dosage: 300 MILLIGRAM, BID
     Route: 065
     Dates: start: 20250220

REACTIONS (11)
  - Pulmonary embolism [Fatal]
  - Blindness [Unknown]
  - Metastases to the mediastinum [Unknown]
  - Pulmonary mass [Unknown]
  - Pleural fibrosis [Unknown]
  - Pericardial fibrosis [Unknown]
  - Pulmonary thrombosis [Unknown]
  - Renal tubular necrosis [Unknown]
  - Glomerulosclerosis [Unknown]
  - Aortic arteriosclerosis [Unknown]
  - Coronary artery disease [Unknown]

NARRATIVE: CASE EVENT DATE: 20250302
